FAERS Safety Report 19490278 (Version 1)
Quarter: 2021Q3

REPORT INFORMATION
  Report Type: Spontaneous
  Country: DE (occurrence: DE)
  Receive Date: 20210705
  Receipt Date: 20210705
  Transmission Date: 20211014
  Serious: Yes (Hospitalization)
  Sender: FDA-Public Use
  Company Number: DE-TEVA-2021-DE-1928314

PATIENT
  Age: 72 Year
  Sex: Female

DRUGS (11)
  1. ROSUVASTATIN. [Concomitant]
     Active Substance: ROSUVASTATIN
     Dosage: 5 MILLIGRAM DAILY;  0?0?1?0,
     Route: 048
  2. AMLODIPIN [Concomitant]
     Active Substance: AMLODIPINE BESYLATE
     Dosage: 5 MILLIGRAM DAILY;  0?0?1?0,
     Route: 048
  3. METAMIZOL [Concomitant]
     Active Substance: METAMIZOLE SODIUM
     Dosage: 2000 MILLIGRAM DAILY;   1?1?1?1,
     Route: 048
  4. HYDROMORPHON [Concomitant]
     Active Substance: HYDROMORPHONE
     Dosage: 4 MILLIGRAM DAILY; 1?0?1?0, SUSTAINED RELEASE CAPSULE
     Route: 048
  5. RISPERIDON [Concomitant]
     Active Substance: RISPERIDONE
     Dosage: 1 MG / ML, IF NECESSARY A QUARTER OF A MG UP TO FOUR TIMES A DAY, SOLUTION
     Route: 048
  6. VITAMIN D3?HEVERT [Concomitant]
     Dosage: 1000 IU (INTERNATIONAL UNIT) DAILY;   1?0?0?0,
     Route: 048
  7. HYDROMORPHON [Concomitant]
     Active Substance: HYDROMORPHONE
     Dosage: 7.8 MILLIGRAM DAILY; 1.3 MG,  IF NECESSARY
     Route: 048
  8. SPIRONOLACTON [Suspect]
     Active Substance: SPIRONOLACTONE
     Dosage: 25 MILLIGRAM DAILY;  1?0?0?0,
     Route: 048
  9. MACROGOL ABZ BALANCE [Concomitant]
     Active Substance: POLYETHYLENE GLYCOL 3350\POTASSIUM CHLORIDE\SODIUM BICARBONATE\SODIUM CHLORIDE
     Dosage: 2 DOSAGE FORMS DAILY; 1?0?1?0, POWDER TABLETS
     Route: 048
  10. RAMIPRIL. [Concomitant]
     Active Substance: RAMIPRIL
     Dosage: 10 MILLIGRAM DAILY;  1?0?1?0,
     Route: 048
  11. FOLSAURE [Concomitant]
     Active Substance: FOLIC ACID
     Dosage: .4 MILLIGRAM DAILY;  1?0?0?0,
     Route: 048

REACTIONS (2)
  - Back pain [Recovering/Resolving]
  - Pain [Recovering/Resolving]
